FAERS Safety Report 5270532-5 (Version None)
Quarter: 2007Q1

REPORT INFORMATION
  Report Type: 
  Country: None (occurrence: None)
  Receive Date: 20070315
  Receipt Date: 20070301
  Transmission Date: 20070707
  Serious: Yes (Other)
  Sender: FDA-Public Use
  Company Number: POMP-10867

PATIENT
  Age: 46 Year
  Sex: Female
  Weight: 72.9 kg

DRUGS (23)
  1. ALPHA-GLUCOSIDASE (HUMAN, RECOMBINANT, CHO CELLS, GENZYME) [Suspect]
     Indication: GLYCOGEN STORAGE DISEASE TYPE II
     Dosage: 20 MG/KG Q2WKS IV
     Route: 042
     Dates: start: 20060119, end: 20061027
  2. ALPHA-GLUCOSIDASE (HUMAN, RECOMBINANT, CHO CELLS, GENZYME) [Suspect]
  3. ALPHA-GLUCOSIDASE (HUMAN, RECOMBINANT, CHO CELLS, GENZYME) [Suspect]
  4. ALPHA-GLUCOSIDASE (HUMAN, RECOMBINANT, CHO CELLS, GENZYME) [Suspect]
  5. ALPHA-GLUCOSIDASE (HUMAN, RECOMBINANT, CHO CELLS, GENZYME) [Suspect]
  6. ALPHA-GLUCOSIDASE (HUMAN, RECOMBINANT, CHO CELLS, GENZYME) [Suspect]
  7. ALPHA-GLUCOSIDASE (HUMAN, RECOMBINANT, CHO CELLS, GENZYME) [Suspect]
     Indication: GLYCOGEN STORAGE DISEASE TYPE II
     Dosage: 20 MG/KG Q2WKS IV
     Route: 042
     Dates: start: 20061127
  8. ALPHA-GLUCOSIDASE (HUMAN, RECOMBINANT, CHO CELLS, GENZYME) [Suspect]
  9. ALPHA-GLUCOSIDASE (HUMAN, RECOMBINANT, CHO CELLS, GENZYME) [Suspect]
  10. ALPHA-GLUCOSIDASE (HUMAN, RECOMBINANT, CHO CELLS, GENZYME) [Suspect]
  11. TYLENOL [Concomitant]
  12. LEVOTHYROXINE SODIUM [Concomitant]
  13. CLARITIN [Concomitant]
  14. ADVIL [Concomitant]
  15. ADVAIR DISKUS 100/50 [Concomitant]
  16. FOSAMAX [Concomitant]
  17. CLOBETASOL PROPIONATE [Concomitant]
  18. ZOLOFT [Concomitant]
  19. NASONEX [Concomitant]
  20. CIPROFLOXACIN [Concomitant]
  21. DETROL [Concomitant]
  22. NAPROXEN [Concomitant]
  23. IMODIUM [Concomitant]

REACTIONS (16)
  - CONTUSION [None]
  - DRY SKIN [None]
  - ECZEMA [None]
  - GANGRENE [None]
  - OEDEMA PERIPHERAL [None]
  - PAIN IN EXTREMITY [None]
  - PITTING OEDEMA [None]
  - PRURITUS [None]
  - PSEUDOMONAS INFECTION [None]
  - RASH MACULO-PAPULAR [None]
  - RASH PRURITIC [None]
  - SEPTAL PANNICULITIS [None]
  - SKIN HYPERPIGMENTATION [None]
  - SKIN ULCER [None]
  - THROMBOPHLEBITIS [None]
  - XEROSIS [None]
